FAERS Safety Report 7639656-9 (Version None)
Quarter: 2011Q3

REPORT INFORMATION
  Report Type: 
  Country: None (occurrence: None)
  Receive Date: 20110727
  Receipt Date: 20110722
  Transmission Date: 20111222
  Serious: Yes (Other)
  Sender: FDA-Public Use
  Company Number: US-PFIZER INC-2011167188

PATIENT
  Sex: Male

DRUGS (2)
  1. GEODON [Suspect]
     Indication: PSYCHOTIC BEHAVIOUR
  2. GEODON [Suspect]
     Indication: NIGHTMARE
     Dosage: 80 MG, 2X/DAY
     Route: 048

REACTIONS (3)
  - PARANOIA [None]
  - PSYCHOTIC BEHAVIOUR [None]
  - DEPRESSION [None]
